FAERS Safety Report 5127936-0 (Version None)
Quarter: 2006Q4

REPORT INFORMATION
  Report Type: 
  Country: None (occurrence: None)
  Receive Date: 20061011
  Receipt Date: 20060926
  Transmission Date: 20070319
  Serious: Yes (Death, Hospitalization)
  Sender: FDA-Public Use
  Company Number: A-CH2006-13089

PATIENT
  Age: 79 Year
  Sex: Female

DRUGS (6)
  1. TRACLEER [Suspect]
     Indication: DRUG USE FOR UNKNOWN INDICATION
     Dosage: 62.5 MG, BID, ORAL
     Route: 048
     Dates: start: 20041215, end: 20050111
  2. RAMIPRIL [Concomitant]
  3. FUROSEMIDE [Concomitant]
  4. MARCUMAR [Concomitant]
  5. DIGITOXIN TAB [Concomitant]
  6. OXYGEN (OXYGEN) [Concomitant]

REACTIONS (6)
  - COR PULMONALE [None]
  - MULTI-ORGAN FAILURE [None]
  - PLEURAL EFFUSION [None]
  - RENAL FAILURE [None]
  - RESPIRATORY FAILURE [None]
  - SYSTEMIC SCLEROSIS [None]
